FAERS Safety Report 9003411 (Version 2)
Quarter: 2013Q1

REPORT INFORMATION
  Report Type: Spontaneous
  Country: US (occurrence: US)
  Receive Date: 20130108
  Receipt Date: 20130129
  Transmission Date: 20140127
  Serious: Yes (Other)
  Sender: FDA-Public Use
  Company Number: US-GLAXOSMITHKLINE-A1006904A

PATIENT
  Age: 55 Year
  Sex: Female

DRUGS (9)
  1. FLOVENT [Suspect]
     Indication: ASTHMA
     Dosage: 50MCG UNKNOWN
     Route: 055
     Dates: start: 20090513
  2. ALVESCO [Suspect]
     Indication: ASTHMA
     Dosage: 80MCG UNKNOWN
     Route: 065
     Dates: start: 20110101
  3. ADVAIR [Concomitant]
     Indication: ASTHMA
     Dosage: 1PUFF TWICE PER DAY
     Route: 055
  4. CONCURRENT MEDICATIONS [Concomitant]
  5. XOPENEX [Concomitant]
  6. ZYRTEC [Concomitant]
  7. SINGULAIR [Concomitant]
  8. ALLERGY SHOT [Concomitant]
     Dates: start: 20090708
  9. SYMBICORT [Concomitant]
     Indication: ASTHMA
     Route: 065

REACTIONS (6)
  - Choking [Recovered/Resolved]
  - Oesophageal candidiasis [Recovered/Resolved]
  - Cough [Recovered/Resolved]
  - Dyspnoea [Recovered/Resolved]
  - Drug ineffective [Recovered/Resolved]
  - Drug administration error [Recovered/Resolved]
